FAERS Safety Report 7797351-X (Version None)
Quarter: 2011Q4

REPORT INFORMATION
  Report Type: 
  Country: None (occurrence: None)
  Receive Date: 20111005
  Receipt Date: 20110926
  Transmission Date: 20120403
  Serious: Yes (Hospitalization)
  Sender: FDA-Public Use
  Company Number: JP-B.I. PHARMACEUTICALS,INC./RIDGEFIELD-2011-BP-15052NB

PATIENT
  Sex: Male
  Weight: 52 kg

DRUGS (9)
  1. MEVAN [Concomitant]
     Route: 048
     Dates: end: 20110502
  2. FAMOTIDINE [Concomitant]
     Route: 048
     Dates: end: 20110502
  3. ASPIRIN [Concomitant]
     Dosage: 100 MG
     Route: 048
     Dates: end: 20110502
  4. DISOPYRAMIDE [Concomitant]
     Dosage: 300 MG
     Route: 048
     Dates: end: 20110502
  5. MAGNESIUM OXIDE [Concomitant]
     Dosage: 3 G
     Route: 048
     Dates: end: 20110502
  6. PRADAXA [Suspect]
     Indication: ANTICOAGULANT THERAPY
     Dosage: 150 MG
     Route: 048
     Dates: start: 20110425, end: 20110502
  7. HALTHROW [Concomitant]
     Dosage: 0.2 MG
     Route: 048
     Dates: end: 20110502
  8. FANMIL [Concomitant]
     Dosage: 300 MG
     Route: 048
     Dates: end: 20110502
  9. BIO-THREE [Concomitant]
     Route: 048
     Dates: end: 20110502

REACTIONS (2)
  - HYPOPHAGIA [None]
  - MYOCLONUS [None]
